FAERS Safety Report 5466842-9 (Version None)
Quarter: 2007Q3

REPORT INFORMATION
  Report Type: 
  Country: None (occurrence: None)
  Receive Date: 20070925
  Receipt Date: 20070910
  Transmission Date: 20080115
  Serious: Yes (Other)
  Sender: FDA-Public Use
  Company Number: ES-BRISTOL-MYERS SQUIBB COMPANY-13904958

PATIENT

DRUGS (2)
  1. DOXORUBICIN HCL [Suspect]
     Indication: SARCOMA
     Route: 040
  2. IFOSFAMIDE [Suspect]
     Indication: SARCOMA
     Dosage: DOSAGE: 2G/M2/DAY
     Route: 042

REACTIONS (4)
  - ASTHENIA [None]
  - FEBRILE NEUTROPENIA [None]
  - GRANULOCYTOPENIA [None]
  - THROMBOCYTOPENIA [None]
